FAERS Safety Report 8119540-7 (Version None)
Quarter: 2012Q1

REPORT INFORMATION
  Report Type: 
  Country: None (occurrence: None)
  Receive Date: 20120207
  Receipt Date: 20120130
  Transmission Date: 20120608
  Serious: Yes (Hospitalization, Other)
  Sender: FDA-Public Use
  Company Number: PHHY2012CA002726

PATIENT
  Sex: Female

DRUGS (6)
  1. DITROPAN [Concomitant]
     Dosage: UNK
  2. CELEBREX [Concomitant]
  3. VITAMIN D [Concomitant]
  4. IRBESARTAN [Concomitant]
  5. SYNTHROID [Concomitant]
     Dosage: UNK
  6. GILENYA [Suspect]
     Indication: RELAPSING-REMITTING MULTIPLE SCLEROSIS
     Dosage: 0.5 MG, DAILY
     Route: 048
     Dates: start: 20111220, end: 20120129

REACTIONS (7)
  - HEPATIC ENZYME INCREASED [None]
  - CONVULSION [None]
  - FATIGUE [None]
  - BLOOD PRESSURE INCREASED [None]
  - CSF PROTEIN INCREASED [None]
  - BLOOD MAGNESIUM DECREASED [None]
  - HEADACHE [None]
